FAERS Safety Report 7501983-3 (Version None)
Quarter: 2011Q2

REPORT INFORMATION
  Report Type: 
  Country: None (occurrence: None)
  Receive Date: 20110523
  Receipt Date: 20110523
  Transmission Date: 20111010
  Serious: Yes (Life-Threatening, Disabling, Other)
  Sender: FDA-Public Use
  Company Number: None

PATIENT
  Sex: Female

DRUGS (1)
  1. NABUMETONE [Suspect]

REACTIONS (11)
  - FATIGUE [None]
  - ABDOMINAL DISTENSION [None]
  - RENAL PAIN [None]
  - CHEST DISCOMFORT [None]
  - CEREBROVASCULAR ACCIDENT [None]
  - DYSPNOEA [None]
  - URINARY TRACT OBSTRUCTION [None]
  - DIARRHOEA [None]
  - DIZZINESS [None]
  - HEADACHE [None]
  - DRUG HYPERSENSITIVITY [None]
